FAERS Safety Report 21815186 (Version 3)
Quarter: 2023Q1

REPORT INFORMATION
  Report Type: Report from Study
  Country: US (occurrence: US)
  Receive Date: 20230104
  Receipt Date: 20230324
  Transmission Date: 20230418
  Serious: No
  Sender: FDA-Public Use
  Company Number: US-AMGEN-USASP2022227034

PATIENT
  Age: 49 Year
  Sex: Female

DRUGS (3)
  1. OTEZLA [Suspect]
     Active Substance: APREMILAST
     Indication: Psoriasis
     Dosage: 30 MILLIGRAM, BID
     Route: 048
  2. EFFEXOR [Concomitant]
     Active Substance: VENLAFAXINE HYDROCHLORIDE
  3. TIZANIDINE [Concomitant]
     Active Substance: TIZANIDINE

REACTIONS (4)
  - Rash [Unknown]
  - Psoriasis [Unknown]
  - Product use issue [Unknown]
  - Obesity [Unknown]
